FAERS Safety Report 26158662 (Version 1)
Quarter: 2025Q4

REPORT INFORMATION
  Report Type: Spontaneous
  Country: US (occurrence: US)
  Receive Date: 20251215
  Receipt Date: 20251215
  Transmission Date: 20260118
  Serious: No
  Sender: BOEHRINGER INGELHEIM
  Company Number: US-BoehringerIngelheim-2025-BI-115034

PATIENT
  Sex: Male

DRUGS (2)
  1. JASCAYD [Suspect]
     Active Substance: NERANDOMILAST
     Indication: Product used for unknown indication
  2. OFEV [Concomitant]
     Active Substance: NINTEDANIB
     Indication: Product used for unknown indication

REACTIONS (1)
  - Abdominal discomfort [Not Recovered/Not Resolved]
